FAERS Safety Report 19108033 (Version 1)
Quarter: 2021Q2

REPORT INFORMATION
  Report Type: Spontaneous
  Country: US (occurrence: US)
  Receive Date: 20210408
  Receipt Date: 20210408
  Transmission Date: 20210717
  Serious: Yes (Disabling)
  Sender: FDA-Public Use
  Company Number: None

PATIENT
  Age: 26 Year
  Sex: Male
  Weight: 85.5 kg

DRUGS (1)
  1. EURAX [Suspect]
     Active Substance: CROTAMITON
     Indication: PRURITUS GENITAL

REACTIONS (3)
  - Dialysis [None]
  - End stage renal disease [None]
  - Toxicity to various agents [None]

NARRATIVE: CASE EVENT DATE: 20210326
